FAERS Safety Report 8217064-X (Version None)
Quarter: 2012Q1

REPORT INFORMATION
  Report Type: 
  Country: None (occurrence: None)
  Receive Date: 20120319
  Receipt Date: 20120308
  Transmission Date: 20120608
  Serious: No
  Sender: FDA-Public Use
  Company Number: US-BIOGENIDEC-2012BI008501

PATIENT
  Sex: Male

DRUGS (5)
  1. TYSABRI [Suspect]
     Indication: MULTIPLE SCLEROSIS
     Route: 042
  2. AVONEX [Concomitant]
     Route: 030
     Dates: start: 20050501, end: 20080723
  3. TYSABRI [Suspect]
     Route: 042
     Dates: start: 20090831, end: 20110921
  4. AVONEX [Concomitant]
     Indication: MULTIPLE SCLEROSIS
     Route: 030
     Dates: start: 20000403, end: 20020401
  5. AVONEX [Concomitant]
     Route: 030
     Dates: start: 20090801

REACTIONS (2)
  - MOOD SWINGS [None]
  - ANGER [None]
